FAERS Safety Report 18386409 (Version 2)
Quarter: 2020Q4

REPORT INFORMATION
  Report Type: Report from Study
  Country: US (occurrence: US)
  Receive Date: 20201015
  Receipt Date: 20201130
  Transmission Date: 20210114
  Serious: Yes (Other)
  Sender: FDA-Public Use
  Company Number: US-ASTELLAS-2020US028913

PATIENT
  Age: 65 Year
  Sex: Male

DRUGS (1)
  1. ENZALUTAMIDE [Suspect]
     Active Substance: ENZALUTAMIDE
     Indication: PROSTATE CANCER
     Route: 048
     Dates: start: 20200715

REACTIONS (9)
  - Nausea [Unknown]
  - Anxiety [Unknown]
  - Neuropathy peripheral [Unknown]
  - Depression [Unknown]
  - Restlessness [Unknown]
  - Flushing [Unknown]
  - Feeling abnormal [Unknown]
  - Memory impairment [Unknown]
  - Fatigue [Unknown]

NARRATIVE: CASE EVENT DATE: 202007
